FAERS Safety Report 5063749-6 (Version None)
Quarter: 2006Q3

REPORT INFORMATION
  Report Type: 
  Country: None (occurrence: None)
  Receive Date: 20060703
  Receipt Date: 20051103
  Transmission Date: 20061208
  Serious: No
  Sender: FDA-Public Use
  Company Number: 2005S1011009

PATIENT
  Age: 41 Year
  Sex: Female

DRUGS (16)
  1. CLOZAPINE [Suspect]
     Indication: PSYCHOTIC DISORDER
     Dosage: 200 MG; HS; ORAL
     Route: 048
     Dates: start: 20021201
  2. RANITIDINE HYDORCHLORIDE [Concomitant]
  3. CLONAZEPAM [Concomitant]
  4. OXYBUTYNIN [Concomitant]
  5. DEXTROPROPOXYPHENE HYDROCHLORIDE [Concomitant]
  6. FUROSEMIDE [Concomitant]
  7. METFORMIN HYDROCHLORIDE [Concomitant]
  8. QUETIAPINE FUMARATE [Concomitant]
  9. GLIBENCLAMIDE [Concomitant]
  10. SETRALINE HCL [Concomitant]
  11. FLUTICASONE PROPIONATE/SALMETEROL XINAFOATE [Concomitant]
  12. LATANOPROST [Concomitant]
  13. INSULIN GLARGINE [Concomitant]
  14. IPRATROPIUM BROMIDE/SALBUTAMOL SULFATE [Concomitant]
  15. ISOPHANE INSULIN [Concomitant]
  16. MEDROXYPROGESTERONE [Concomitant]

REACTIONS (1)
  - GRANULOCYTOPENIA [None]
